FAERS Safety Report 6599147-3 (Version None)
Quarter: 2010Q1

REPORT INFORMATION
  Report Type: 
  Country: None (occurrence: None)
  Receive Date: 20100212
  Receipt Date: 20090922
  Transmission Date: 20100710
  Serious: No
  Sender: FDA-Public Use
  Company Number: 2009-00610

PATIENT
  Age: 40 Year
  Sex: Female
  Weight: 122.4712 kg

DRUGS (1)
  1. ZICAM COLD REMEDY NASAL GEL [Suspect]
     Dosage: QD- 1 DAY
     Dates: start: 20090921, end: 20090922

REACTIONS (2)
  - AGEUSIA [None]
  - ANOSMIA [None]
